FAERS Safety Report 13935703 (Version 1)
Quarter: 2017Q3

REPORT INFORMATION
  Report Type: Spontaneous
  Country: US (occurrence: None)
  Receive Date: 20170904
  Receipt Date: 20170904
  Transmission Date: 20171127
  Serious: Yes (Life-Threatening)
  Sender: FDA-Public Use
  Company Number: None

PATIENT
  Age: 63 Year
  Sex: Male
  Weight: 121.97 kg

DRUGS (1)
  1. LISINOPRIL. [Suspect]
     Active Substance: LISINOPRIL
     Indication: HYPERTENSION
     Dosage: 0.5 TAB EVERY DAY PO
     Route: 048
     Dates: start: 20170106, end: 20170219

REACTIONS (2)
  - Cough [None]
  - Angioedema [None]

NARRATIVE: CASE EVENT DATE: 20170220
